FAERS Safety Report 14032611 (Version 2)
Quarter: 2017Q4

REPORT INFORMATION
  Report Type: Spontaneous
  Country: US (occurrence: US)
  Receive Date: 20171002
  Receipt Date: 20171006
  Transmission Date: 20180321
  Serious: No
  Sender: FDA-Public Use
  Company Number: US-PFIZER INC-2017421733

PATIENT
  Age: 59 Year
  Sex: Female
  Weight: 70.31 kg

DRUGS (3)
  1. VENLAFAXINE [Suspect]
     Active Substance: VENLAFAXINE HYDROCHLORIDE
     Indication: ANXIETY
     Dosage: 150 MG, UNK (TWO 75MG OF THE VENLAFAXINE ER) EACH MORNING
     Dates: start: 20170920
  2. LORAZEPAM. [Concomitant]
     Active Substance: LORAZEPAM
     Indication: ANXIETY
     Dosage: 0.5MG AS NEEDED
     Dates: start: 201707
  3. VENLAFAXINE [Suspect]
     Active Substance: VENLAFAXINE HYDROCHLORIDE
     Dosage: 150 MG, 1X/DAY

REACTIONS (8)
  - Dizziness [Recovered/Resolved]
  - Feeling jittery [Recovered/Resolved]
  - Condition aggravated [Recovered/Resolved]
  - Product solubility abnormal [Recovered/Resolved]
  - Anxiety [Recovered/Resolved]
  - Intercepted drug prescribing error [Unknown]
  - Nausea [Recovered/Resolved]
  - Feeling abnormal [Recovered/Resolved]

NARRATIVE: CASE EVENT DATE: 201709
